FAERS Safety Report 10264751 (Version 1)
Quarter: 2014Q2

REPORT INFORMATION
  Report Type: Spontaneous
  Country: US (occurrence: US)
  Receive Date: 20140627
  Receipt Date: 20140627
  Transmission Date: 20141212
  Serious: Yes (Hospitalization)
  Sender: FDA-Public Use
  Company Number: US-SHIRE-US201403148

PATIENT
  Age: 7 Decade
  Sex: Male

DRUGS (3)
  1. LIALDA [Suspect]
     Indication: COLITIS ULCERATIVE
     Dosage: (2 TO 3 TABLETS OF 1.2 G), 1X/DAY:QD
     Route: 048
  2. UCERIS [Suspect]
     Indication: COLITIS ULCERATIVE
     Dosage: 9 MG, UNKNOWN
     Route: 065
  3. DRUGS USED IN DIABETES [Concomitant]
     Indication: DIABETES MELLITUS
     Dosage: UNK, UNKNOWN
     Route: 065

REACTIONS (1)
  - Hyperglycaemia [Unknown]
